FAERS Safety Report 5982038-6 (Version None)
Quarter: 2008Q4

REPORT INFORMATION
  Report Type: 
  Country: None (occurrence: None)
  Receive Date: 20081205
  Receipt Date: 20080226
  Transmission Date: 20090506
  Serious: No
  Sender: FDA-Public Use
  Company Number: US-AMGEN-KDL263785

PATIENT
  Sex: Male

DRUGS (5)
  1. ENBREL [Suspect]
     Indication: PSORIATIC ARTHROPATHY
     Route: 058
     Dates: start: 20030501
  2. METHOTREXATE [Concomitant]
     Route: 048
     Dates: start: 19900101
  3. ACTONEL [Concomitant]
  4. CALCIUM WITH VITAMIN D [Concomitant]
  5. LIPITOR [Concomitant]

REACTIONS (2)
  - NASOPHARYNGITIS [None]
  - PYREXIA [None]
